FAERS Safety Report 5693943-2 (Version None)
Quarter: 2008Q2

REPORT INFORMATION
  Report Type: 
  Country: None (occurrence: None)
  Receive Date: 20080403
  Receipt Date: 20080328
  Transmission Date: 20081010
  Serious: Yes (Hospitalization)
  Sender: FDA-Public Use
  Company Number: FR-BOEHRINGER INGELHEIM GMBH, GERMANY-2008-FF-00252FF

PATIENT
  Sex: Female

DRUGS (10)
  1. MICARDIS HCT [Suspect]
     Route: 048
     Dates: start: 20071001
  2. CELECTOL [Concomitant]
     Dosage: 2 DF (1DF, 2 IN 1 DAY)
     Route: 048
  3. LAMICTAL [Concomitant]
     Route: 048
  4. KEPPRA [Concomitant]
     Dosage: 6 DF (3 DF, 2 IN 1DAY)
     Route: 048
  5. URBANYL [Concomitant]
     Route: 048
  6. KARDEGIC [Concomitant]
     Route: 048
  7. PLAVIX [Concomitant]
     Route: 048
  8. ATORVASTATIN CALCIUM [Concomitant]
     Route: 048
  9. GLUCOPHAGE [Concomitant]
     Route: 048
  10. DOLIPRANE [Concomitant]
     Route: 048

REACTIONS (1)
  - HYPERTHERMIA [None]
